FAERS Safety Report 12142895 (Version 3)
Quarter: 2016Q3

REPORT INFORMATION
  Report Type: Spontaneous
  Country: None (occurrence: GB)
  Receive Date: 20160303
  Receipt Date: 20160728
  Transmission Date: 20161109
  Serious: Yes (Disabling)
  Sender: FDA-Public Use
  Company Number: GB-ALLERGAN-1637439US

PATIENT
  Age: 78 Year
  Sex: Male

DRUGS (2)
  1. ACULAR [Suspect]
     Active Substance: KETOROLAC TROMETHAMINE
     Indication: POSTOPERATIVE CARE
     Dosage: UNK
     Route: 047
     Dates: start: 20151109, end: 20151116
  2. MAXITROL [Interacting]
     Active Substance: DEXAMETHASONE\NEOMYCIN SULFATE\POLYMYXIN B SULFATE
     Indication: POSTOPERATIVE CARE
     Dosage: UNK
     Dates: start: 20151109, end: 20151116

REACTIONS (5)
  - Ulcerative keratitis [Not Recovered/Not Resolved]
  - Corneal scar [Not Recovered/Not Resolved]
  - Corneal dystrophy [Unknown]
  - Blindness [Not Recovered/Not Resolved]
  - Drug interaction [Unknown]
